FAERS Safety Report 6987816-2 (Version None)
Quarter: 2010Q3

REPORT INFORMATION
  Report Type: 
  Country: None (occurrence: None)
  Receive Date: 20100914
  Receipt Date: 20100903
  Transmission Date: 20110219
  Serious: Yes (Life-Threatening, Hospitalization)
  Sender: FDA-Public Use
  Company Number: 105672

PATIENT
  Age: 43 Year
  Sex: Male

DRUGS (2)
  1. CISPLATIN [Suspect]
     Indication: METASTASES TO LUNG
     Dosage: 20MG/M2 (37MG) FOR 5 DAYS
  2. ETOPOSIDE [Suspect]
     Dosage: 100 MG/M2 (187MG) FOR 5 DAYS

REACTIONS (6)
  - ACUTE MYOCARDIAL INFARCTION [None]
  - CORONARY ARTERY OCCLUSION [None]
  - CORONARY ARTERY THROMBOSIS [None]
  - ELECTROCARDIOGRAM ST SEGMENT DEPRESSION [None]
  - ELECTROCARDIOGRAM ST SEGMENT ELEVATION [None]
  - GENE MUTATION IDENTIFICATION TEST POSITIVE [None]
